FAERS Safety Report 7507083-0 (Version None)
Quarter: 2011Q2

REPORT INFORMATION
  Report Type: 
  Country: None (occurrence: None)
  Receive Date: 20110526
  Receipt Date: 20110523
  Transmission Date: 20111010
  Serious: Yes (Death, Hospitalization, Other)
  Sender: FDA-Public Use
  Company Number: PHHY2011BE26706

PATIENT
  Sex: Male

DRUGS (15)
  1. SANDIMMUNE [Suspect]
     Dates: start: 20070601
  2. ONCOVIN [Concomitant]
     Indication: ACUTE LYMPHOCYTIC LEUKAEMIA
     Dates: start: 20040910
  3. GLEEVEC [Suspect]
     Indication: ACUTE LYMPHOCYTIC LEUKAEMIA
     Route: 048
     Dates: start: 20041109
  4. SANDIMMUNE [Suspect]
     Indication: CHRONIC GRAFT VERSUS HOST DISEASE
     Dates: start: 20060301
  5. GLEEVEC [Suspect]
     Dosage: 400 MG, DAILY
     Route: 048
     Dates: start: 20080201, end: 20100201
  6. ASPARAGINASE [Concomitant]
     Indication: ACUTE LYMPHOCYTIC LEUKAEMIA
     Dates: start: 20040910
  7. IMURAN [Concomitant]
     Dates: start: 20080401
  8. SOLU-MEDROL [Concomitant]
     Indication: ACUTE LYMPHOCYTIC LEUKAEMIA
     Dates: start: 20040910
  9. DAUNORUBICIN HCL [Concomitant]
     Indication: ACUTE LYMPHOCYTIC LEUKAEMIA
     Dates: start: 20040910
  10. CYTARABINE [Concomitant]
     Dates: start: 20041109
  11. MITOXANTRONE [Concomitant]
     Dates: start: 20041109
  12. MEDROL [Concomitant]
     Dates: start: 20071201
  13. CYCLOPHOSPHAMIDE [Concomitant]
     Indication: ACUTE LYMPHOCYTIC LEUKAEMIA
     Dates: start: 20040910
  14. CELLCEPT [Concomitant]
     Dates: end: 20060601
  15. THALIDOMIDE [Concomitant]
     Dates: start: 20061201, end: 20070301

REACTIONS (13)
  - RESPIRATORY TRACT INFECTION [None]
  - NEOPLASM MALIGNANT [None]
  - HYPOGAMMAGLOBULINAEMIA [None]
  - CACHEXIA [None]
  - PYREXIA [None]
  - GENERAL PHYSICAL HEALTH DETERIORATION [None]
  - DECREASED APPETITE [None]
  - DRUG INTOLERANCE [None]
  - DIFFUSE LARGE B-CELL LYMPHOMA [None]
  - ABDOMINAL PAIN [None]
  - WEIGHT DECREASED [None]
  - NON-HODGKIN'S LYMPHOMA [None]
  - EPSTEIN-BARR VIRUS ASSOCIATED LYMPHOPROLIFERATIVE DISORDER [None]
